FAERS Safety Report 10673868 (Version 1)
Quarter: 2014Q4

REPORT INFORMATION
  Report Type: Spontaneous
  Country: DK (occurrence: DK)
  Receive Date: 20141224
  Receipt Date: 20141224
  Transmission Date: 20150529
  Serious: Yes (Other)
  Sender: FDA-Public Use
  Company Number: DK-AMGEN-DNKSP2014099298

PATIENT
  Sex: Female

DRUGS (3)
  1. PROLIA [Suspect]
     Active Substance: DENOSUMAB
     Indication: OSTEOPOROSIS
     Dosage: 60 MG/ML, UNK
     Route: 065
     Dates: end: 201410
  2. MAGNESIA                           /07349401/ [Concomitant]
     Indication: CONSTIPATION
     Dosage: 500 MG, UNK
  3. SUMATRIPTAN GLAXOSMITHKLINE [Concomitant]
     Indication: MIGRAINE

REACTIONS (1)
  - Diverticulitis [Unknown]
